FAERS Safety Report 16410578 (Version 1)
Quarter: 2019Q2

REPORT INFORMATION
  Report Type: Spontaneous
  Country: US (occurrence: US)
  Receive Date: 20190610
  Receipt Date: 20190610
  Transmission Date: 20190711
  Serious: Yes (Hospitalization, Other)
  Sender: FDA-Public Use
  Company Number: US-VALIDUS PHARMACEUTICALS LLC-US-2019VAL000251

PATIENT

DRUGS (9)
  1. LASIX [Suspect]
     Active Substance: FUROSEMIDE
     Indication: PRODUCT USED FOR UNKNOWN INDICATION
     Dosage: UNK
     Route: 065
     Dates: end: 20190521
  2. SINEMET [Concomitant]
     Active Substance: CARBIDOPA\LEVODOPA
     Indication: PARKINSON^S DISEASE
     Dosage: 3 DF, QD
  3. ELIQUIS [Concomitant]
     Active Substance: APIXABAN
     Indication: ATRIAL FIBRILLATION
  4. LOSARTAN. [Concomitant]
     Active Substance: LOSARTAN
     Indication: PRODUCT USED FOR UNKNOWN INDICATION
     Dosage: UNK
     Dates: end: 20190520
  5. VENCLEXTA [Suspect]
     Active Substance: VENETOCLAX
     Indication: ACUTE MYELOID LEUKAEMIA
     Dosage: 100 MG, QD
     Route: 048
     Dates: start: 20190315, end: 20190411
  6. DACOGEN [Suspect]
     Active Substance: DECITABINE
     Indication: ACUTE MYELOID LEUKAEMIA
     Dosage: 1 DF, QD (DAY 1-5 OF 28 DAY CYCLE)
     Route: 042
     Dates: start: 20190315, end: 20190324
  7. DECITABINE. [Concomitant]
     Active Substance: DECITABINE
     Indication: ACUTE MYELOID LEUKAEMIA
     Dosage: WEEK 1 OF 28 DAY
  8. CO SALT [Concomitant]
     Indication: PRODUCT USED FOR UNKNOWN INDICATION
     Dosage: UNK
  9. METOPROLOL. [Concomitant]
     Active Substance: METOPROLOL
     Indication: PRODUCT USED FOR UNKNOWN INDICATION
     Dosage: UNK
     Dates: start: 201905

REACTIONS (21)
  - Peripheral swelling [Recovering/Resolving]
  - Asthenia [Recovering/Resolving]
  - Gastrointestinal pain [Recovered/Resolved]
  - Rash [Not Recovered/Not Resolved]
  - Dehydration [Not Recovered/Not Resolved]
  - Dizziness postural [Not Recovered/Not Resolved]
  - Feeling abnormal [Not Recovered/Not Resolved]
  - Weight decreased [Not Recovered/Not Resolved]
  - White blood cell count decreased [Unknown]
  - Blood pressure orthostatic decreased [Not Recovered/Not Resolved]
  - Myocardial necrosis marker increased [Unknown]
  - Platelet count decreased [Not Recovered/Not Resolved]
  - Muscle discomfort [Recovering/Resolving]
  - Muscular weakness [Recovering/Resolving]
  - Fluid retention [Recovering/Resolving]
  - Weight increased [Recovering/Resolving]
  - Chest pain [Recovered/Resolved]
  - Choking [Recovering/Resolving]
  - Fatigue [Recovering/Resolving]
  - Haemoglobin abnormal [Unknown]
  - Acute myeloid leukaemia [Unknown]

NARRATIVE: CASE EVENT DATE: 2019
